FAERS Safety Report 25754539 (Version 1)
Quarter: 2025Q3

REPORT INFORMATION
  Report Type: Spontaneous
  Country: US (occurrence: US)
  Receive Date: 20250903
  Receipt Date: 20250903
  Transmission Date: 20251021
  Serious: No
  Sender: BIONPHARMA INC.
  Company Number: US-Bion-015229

PATIENT
  Age: 78 Year
  Sex: Female

DRUGS (3)
  1. LOPERAMIDE HYDROCHLORIDE [Suspect]
     Active Substance: LOPERAMIDE HYDROCHLORIDE
     Indication: Diarrhoea
     Route: 048
     Dates: start: 20250616
  2. IMATINIB [Concomitant]
     Active Substance: IMATINIB
     Indication: Leukaemia
  3. GALANTAMINE HYDROBROMIDE [Concomitant]
     Active Substance: GALANTAMINE HYDROBROMIDE
     Indication: Dementia

REACTIONS (1)
  - Inappropriate schedule of product administration [Unknown]
